FAERS Safety Report 7617346-6 (Version None)
Quarter: 2011Q3

REPORT INFORMATION
  Report Type: 
  Country: None (occurrence: None)
  Receive Date: 20110718
  Receipt Date: 20110709
  Transmission Date: 20111222
  Serious: Yes (Other)
  Sender: FDA-Public Use
  Company Number: IN-B.I. PHARMACEUTICALS,INC./RIDGEFIELD-2011-CS-00564IG

PATIENT

DRUGS (2)
  1. METALYSE [Suspect]
     Indication: MYOCARDIAL INFARCTION
     Dosage: 0.9MG/KG BODY WEIGHT
     Route: 042
     Dates: start: 20110709, end: 20110709
  2. METALYSE [Suspect]
     Indication: CHEST PAIN

REACTIONS (2)
  - HYPOTENSION [None]
  - DRUG INEFFECTIVE [None]
